FAERS Safety Report 20746268 (Version 1)
Quarter: 2022Q2

REPORT INFORMATION
  Report Type: Spontaneous
  Country: US (occurrence: US)
  Receive Date: 20220425
  Receipt Date: 20220425
  Transmission Date: 20220720
  Serious: No
  Sender: FDA-Public Use
  Company Number: US-PFIZER INC-2021749018

PATIENT
  Sex: Female

DRUGS (2)
  1. DESVENLAFAXINE SUCCINATE [Suspect]
     Active Substance: DESVENLAFAXINE SUCCINATE
     Indication: Depression
     Dosage: 25 MG, 1X/DAY
     Dates: start: 20210616
  2. DESVENLAFAXINE SUCCINATE [Suspect]
     Active Substance: DESVENLAFAXINE SUCCINATE
     Indication: Anxiety
     Dosage: TAKING THE MEDICATION EVERY OTHER DAY
     Dates: start: 20210616

REACTIONS (4)
  - Off label use [Unknown]
  - Intentional product misuse [Unknown]
  - Chills [Unknown]
  - Nervousness [Unknown]

NARRATIVE: CASE EVENT DATE: 20210616
